FAERS Safety Report 12956658 (Version 2)
Quarter: 2016Q4

REPORT INFORMATION
  Report Type: Spontaneous
  Country: IT (occurrence: IT)
  Receive Date: 20161118
  Receipt Date: 20161229
  Transmission Date: 20170207
  Serious: Yes (Hospitalization, Other)
  Sender: FDA-Public Use
  Company Number: IT-ROCHE-1847769

PATIENT
  Age: 74 Year
  Sex: Female
  Weight: 51 kg

DRUGS (2)
  1. AVASTIN [Suspect]
     Active Substance: BEVACIZUMAB
     Dosage: INCREASED DOSE
     Route: 050
  2. AVASTIN [Suspect]
     Active Substance: BEVACIZUMAB
     Indication: EXUDATIVE RETINOPATHY
     Dosage: NO
     Route: 050
     Dates: start: 20161012, end: 20161116

REACTIONS (14)
  - Off label use [Unknown]
  - Decreased appetite [Not Recovered/Not Resolved]
  - Rash [Not Recovered/Not Resolved]
  - Syncope [Recovered/Resolved with Sequelae]
  - Nausea [Not Recovered/Not Resolved]
  - Lymphadenopathy [Unknown]
  - Immunoglobulins abnormal [Unknown]
  - C-reactive protein increased [Unknown]
  - Pyrexia [Not Recovered/Not Resolved]
  - Pruritus [Not Recovered/Not Resolved]
  - White blood cell count decreased [Unknown]
  - Bone pain [Recovering/Resolving]
  - Serum ferritin increased [Unknown]
  - Headache [Not Recovered/Not Resolved]

NARRATIVE: CASE EVENT DATE: 20161015
